FAERS Safety Report 12411662 (Version 2)
Quarter: 2016Q2

REPORT INFORMATION
  Report Type: Spontaneous
  Country: BR (occurrence: BR)
  Receive Date: 20160527
  Receipt Date: 20160623
  Transmission Date: 20160815
  Serious: Yes (Other)
  Sender: FDA-Public Use
  Company Number: BR-BEH-2016063071

PATIENT
  Sex: Male

DRUGS (1)
  1. BERINERT [Suspect]
     Active Substance: HUMAN C1-ESTERASE INHIBITOR
     Indication: HAEMORRHAGE PROPHYLAXIS
     Dosage: START DATE: ??-AUG-2010
     Route: 064

REACTIONS (10)
  - Speech disorder developmental [Unknown]
  - Adjustment disorder [Unknown]
  - Muscle spasms [Recovered/Resolved]
  - Disorganised speech [Unknown]
  - Tremor [Unknown]
  - Autism [Unknown]
  - Autism spectrum disorder [Unknown]
  - Gait disturbance [Unknown]
  - Coordination abnormal [Unknown]
  - Foetal exposure during pregnancy [Unknown]

NARRATIVE: CASE EVENT DATE: 201008
